FAERS Safety Report 4325012-8 (Version None)
Quarter: 2004Q1

REPORT INFORMATION
  Report Type: 
  Country: None (occurrence: None)
  Receive Date: 20040326
  Receipt Date: 20030926
  Transmission Date: 20041129
  Serious: Yes (Life-Threatening, Hospitalization)
  Sender: FDA-Public Use
  Company Number: FR-ROCHE-348043

PATIENT
  Age: 44 Year
  Sex: Male
  Weight: 80 kg

DRUGS (3)
  1. PEGASYS [Suspect]
     Indication: HEPATITIS C
     Route: 058
     Dates: start: 20030723, end: 20030930
  2. REBETOL [Suspect]
     Indication: HEPATITIS C
     Route: 048
     Dates: start: 20030723, end: 20030919
  3. METHADONE [Concomitant]
     Dates: start: 20030815

REACTIONS (5)
  - ANAEMIA [None]
  - LEUKOPENIA [None]
  - MACROCYTOSIS [None]
  - PANCYTOPENIA [None]
  - THROMBOCYTOPENIA [None]
